FAERS Safety Report 8872041 (Version 1)
Quarter: 2012Q4

REPORT INFORMATION
  Report Type: Spontaneous
  Country: US (occurrence: None)
  Receive Date: 20121026
  Receipt Date: 20121026
  Transmission Date: 20130627
  Serious: No
  Sender: FDA-Public Use
  Company Number: None

PATIENT
  Age: 49 Year
  Sex: Male
  Weight: 107.8 kg

DRUGS (2)
  1. LISINOPRIL [Suspect]
     Indication: HYPERTENSION
     Dosage: 1/2 TAB EVERY DAY PO
     Route: 048
     Dates: start: 20120806, end: 20120808
  2. GABAPENTIN [Suspect]
     Dosage: 1 TAB HS PO
     Route: 048
     Dates: start: 20120806, end: 20120808

REACTIONS (1)
  - Angioedema [None]
